FAERS Safety Report 8631177 (Version 3)
Quarter: 2013Q2

REPORT INFORMATION
  Report Type: Spontaneous
  Country: US (occurrence: US)
  Receive Date: 20120622
  Receipt Date: 20130603
  Transmission Date: 20140414
  Serious: No
  Sender: FDA-Public Use
  Company Number: US-ASTRAZENECA-2012SE40066

PATIENT
  Age: 62 Year
  Sex: Female

DRUGS (4)
  1. NEXIUM [Suspect]
     Route: 048
  2. CRESTOR [Suspect]
     Route: 048
  3. LEVOTHYROXINE [Concomitant]
     Indication: THYROID DISORDER
  4. WATER PILL [Concomitant]

REACTIONS (6)
  - Oesophageal pain [Unknown]
  - Hiatus hernia [Unknown]
  - Throat irritation [Unknown]
  - Hernia [Unknown]
  - Intentional drug misuse [Unknown]
  - Drug dose omission [Unknown]
